FAERS Safety Report 13401225 (Version 1)
Quarter: 2017Q2

REPORT INFORMATION
  Report Type: Report from Study
  Country: IT (occurrence: IT)
  Receive Date: 20170404
  Receipt Date: 20170404
  Transmission Date: 20170830
  Serious: Yes (Other)
  Sender: FDA-Public Use
  Company Number: IT-TEVA-755669ROM

PATIENT

DRUGS (1)
  1. FLUCONAZOLE. [Suspect]
     Active Substance: FLUCONAZOLE
     Indication: CANDIDA SEPSIS
     Dosage: 6 MG/KG BODY WEIGHT EVERY 72 HOURS DURING FIRST TWO WEEKS AND THEN EVERY 48 HOURS
     Route: 065

REACTIONS (1)
  - Pathogen resistance [Unknown]
